FAERS Safety Report 5948139-3 (Version None)
Quarter: 2008Q4

REPORT INFORMATION
  Report Type: 
  Country: None (occurrence: None)
  Receive Date: 20081111
  Receipt Date: 20081103
  Transmission Date: 20090506
  Serious: Yes (Hospitalization)
  Sender: FDA-Public Use
  Company Number: BR-ROCHE-595493

PATIENT
  Age: 69 Year
  Sex: Female

DRUGS (3)
  1. BONIVA [Suspect]
     Indication: DRUG USE FOR UNKNOWN INDICATION
     Route: 048
     Dates: start: 20061201
  2. CALCIUM CITRATE [Concomitant]
  3. VITAMIN D [Concomitant]

REACTIONS (1)
  - DIVERTICULAR PERFORATION [None]
